FAERS Safety Report 8048181-5 (Version None)
Quarter: 2012Q1

REPORT INFORMATION
  Report Type: 
  Country: None (occurrence: None)
  Receive Date: 20120113
  Receipt Date: 20120113
  Transmission Date: 20120608
  Serious: Yes (Hospitalization)
  Sender: FDA-Public Use
  Company Number: None

PATIENT
  Age: 44 Year
  Sex: Male
  Weight: 73.7095 kg

DRUGS (9)
  1. ZANTAC [Concomitant]
  2. OMEPRAZOLE [Concomitant]
  3. VANDETANIB [Suspect]
     Indication: GLIOBLASTOMA
     Dosage: 100 MG, QD, PO
     Route: 048
     Dates: start: 20090311
  4. AMLODIPINE [Concomitant]
  5. METOPROLOL TARTRATE [Concomitant]
  6. CLINDAGEL [Concomitant]
  7. K-PHOS NEUTRAL [Concomitant]
  8. TIZANIDINE HCL [Concomitant]
  9. ZYRTEC [Concomitant]

REACTIONS (1)
  - CHOLELITHIASIS [None]
